FAERS Safety Report 7532324-3 (Version None)
Quarter: 2011Q2

REPORT INFORMATION
  Report Type: 
  Country: None (occurrence: None)
  Receive Date: 20110608
  Receipt Date: 20110603
  Transmission Date: 20111010
  Serious: Yes (Other)
  Sender: FDA-Public Use
  Company Number: DE-MERCK-1005DEU00065

PATIENT
  Age: 63 Year
  Sex: Male

DRUGS (4)
  1. MAGNESIUM ASPARTATE AND MAGNESIUM CITRATE AND MAGNESIUM GLUTAMATE AND [Concomitant]
     Indication: OSTEOPOROSIS
     Route: 048
     Dates: start: 20050214, end: 20101203
  2. ZOLEDRONIC ACID [Suspect]
     Indication: OSTEOPOROSIS
     Route: 041
     Dates: start: 20080610
  3. CALCIUM CARBONATE AND CHOLECALCIFEROL [Concomitant]
     Indication: OSTEOPOROSIS
     Route: 048
     Dates: start: 20041216, end: 20080201
  4. FOSAMAX [Suspect]
     Indication: OSTEOPOROSIS
     Route: 048
     Dates: start: 20041216, end: 20080205

REACTIONS (26)
  - UROGENITAL DISORDER [None]
  - PAIN [None]
  - JOINT DISLOCATION [None]
  - MYALGIA [None]
  - GINGIVAL DISORDER [None]
  - TOOTH DISORDER [None]
  - OSTEONECROSIS OF JAW [None]
  - ANORECTAL DISORDER [None]
  - PERIODONTITIS [None]
  - ROSACEA [None]
  - RENAL PAIN [None]
  - JAW FRACTURE [None]
  - BLEPHARITIS [None]
  - TENOSYNOVITIS [None]
  - TEMPOROMANDIBULAR JOINT SYNDROME [None]
  - MUSCULOSKELETAL PAIN [None]
  - GASTROINTESTINAL DISORDER [None]
  - INTERCOSTAL NEURALGIA [None]
  - SKIN DISORDER [None]
  - IMPAIRED HEALING [None]
  - NECK PAIN [None]
  - BRONCHITIS [None]
  - ARRHYTHMIA [None]
  - MUSCLE SPASMS [None]
  - TENDON DISORDER [None]
  - PHARYNGITIS [None]
